FAERS Safety Report 24154593 (Version 1)
Quarter: 2024Q3

REPORT INFORMATION
  Report Type: Report from Study
  Country: DO (occurrence: DO)
  Receive Date: 20240731
  Receipt Date: 20240731
  Transmission Date: 20241017
  Serious: Yes (Hospitalization)
  Sender: ROCHE
  Company Number: DO-002147023-NVSC2023DO237594

PATIENT
  Age: 43 Year
  Sex: Female

DRUGS (2)
  1. XOLAIR [Suspect]
     Active Substance: OMALIZUMAB
     Indication: Asthma
     Route: 058
     Dates: start: 2021
  2. XOLAIR [Suspect]
     Active Substance: OMALIZUMAB
     Route: 058
     Dates: start: 2021

REACTIONS (7)
  - Pilonidal disease [Recovered/Resolved]
  - Ovarian cyst [Unknown]
  - Influenza [Recovered/Resolved]
  - Gastritis bacterial [Not Recovered/Not Resolved]
  - Asthmatic crisis [Unknown]
  - Hypersensitivity [Unknown]
  - Anaphylactic shock [Unknown]

NARRATIVE: CASE EVENT DATE: 20230901
